FAERS Safety Report 6334403-5 (Version None)
Quarter: 2009Q3

REPORT INFORMATION
  Report Type: 
  Country: None (occurrence: None)
  Receive Date: 20090831
  Receipt Date: 20090817
  Transmission Date: 20100115
  Serious: Yes (Congenital Anomaly)
  Sender: FDA-Public Use
  Company Number: HU-BIOGENIDEC-2009BI027012

PATIENT
  Age: 2 Year
  Sex: Male

DRUGS (1)
  1. AVONEX [Suspect]
     Indication: MULTIPLE SCLEROSIS
     Route: 064
     Dates: end: 20071001

REACTIONS (1)
  - MULTIPLE CONGENITAL ABNORMALITIES [None]
